FAERS Safety Report 24702076 (Version 2)
Quarter: 2024Q4

REPORT INFORMATION
  Report Type: Spontaneous
  Country: US (occurrence: US)
  Receive Date: 20241205
  Receipt Date: 20241217
  Transmission Date: 20250115
  Serious: Yes (Other)
  Sender: BAYER HEALTHCARE PHARMACEUTICALS INC.
  Company Number: US-BAYER-2024A170998

PATIENT
  Age: 76 Year
  Sex: Female

DRUGS (14)
  1. ADEMPAS [Suspect]
     Active Substance: RIOCIGUAT
     Indication: Pulmonary arterial hypertension
     Dosage: 2.5 MG, TID
     Route: 048
     Dates: start: 20200923
  2. LEVOTHYROXINE [Concomitant]
     Active Substance: LEVOTHYROXINE
  3. FUROSEMIDE [Concomitant]
     Active Substance: FUROSEMIDE
  4. AZULFIDINE [Concomitant]
     Active Substance: SULFASALAZINE
  5. ONDANSETRON [Concomitant]
     Active Substance: ONDANSETRON
  6. OXYCODONE [Concomitant]
     Active Substance: OXYCODONE
  7. ATORVASTATIN [Concomitant]
     Active Substance: ATORVASTATIN
  8. IRON [Concomitant]
     Active Substance: IRON
  9. VITAMIN C [Concomitant]
     Active Substance: ASCORBIC ACID
  10. OMEPRAZOLE [Concomitant]
     Active Substance: OMEPRAZOLE
  11. ATENOLOL [Concomitant]
     Active Substance: ATENOLOL
  12. BUDESONIDE [Concomitant]
     Active Substance: BUDESONIDE
  13. CICLOPIROX [Concomitant]
     Active Substance: CICLOPIROX
  14. NITROGLYCERIN [Concomitant]
     Active Substance: NITROGLYCERIN

REACTIONS (3)
  - Presyncope [None]
  - Biopsy liver [None]
  - Dehydration [None]

NARRATIVE: CASE EVENT DATE: 20241101
